FAERS Safety Report 25670479 (Version 1)
Quarter: 2025Q3

REPORT INFORMATION
  Report Type: Spontaneous
  Country: AU (occurrence: AU)
  Receive Date: 20250812
  Receipt Date: 20250812
  Transmission Date: 20251020
  Serious: Yes (Hospitalization, Other)
  Sender: LUPIN
  Company Number: AU-GENERIC HEALTH PTY. LTD.-2025-07150

PATIENT
  Age: 7 Decade
  Sex: Female

DRUGS (8)
  1. PREGABALIN [Suspect]
     Active Substance: PREGABALIN
     Indication: Product used for unknown indication
     Dosage: (50 MG IN THE MORNING AND 75 MG AT NIGHT), BID
     Route: 065
  2. SERTRALINE [Suspect]
     Active Substance: SERTRALINE HYDROCHLORIDE
     Indication: Depression
     Dosage: 100 MG, QD
     Route: 065
  3. AMITRIPTYLINE [Suspect]
     Active Substance: AMITRIPTYLINE
     Indication: Sleep disorder
     Dosage: 25 MG, QD
     Route: 065
     Dates: end: 20241216
  4. OXYCODONE [Concomitant]
     Active Substance: OXYCODONE
     Indication: Abdominal pain upper
     Dosage: 30 MG, BID (MODIFIED RELEASE WITH ORAL OXYCODONE 5 MG AS REQUIRED)
     Route: 065
  5. OXYCODONE [Concomitant]
     Active Substance: OXYCODONE
     Indication: Delirium
  6. OXYCODONE [Concomitant]
     Active Substance: OXYCODONE
     Dosage: 30 MILLIGRAM, QD, DELIVERED THROUGH A SYRINGE DRIVER
     Route: 065
  7. AMOXICILLIN\CLAVULANATE POTASSIUM [Concomitant]
     Active Substance: AMOXICILLIN\CLAVULANATE POTASSIUM
     Indication: Evidence based treatment
     Dosage: 875/125MG, BID
     Route: 065
     Dates: start: 202412, end: 202412
  8. HYDROMORPHONE [Concomitant]
     Active Substance: HYDROMORPHONE
     Indication: Pain management
     Dosage: 8 MILLIGRAM, QD, DELIVERED THROUGH SYRINGE
     Route: 065
     Dates: end: 202412

REACTIONS (1)
  - Serotonin syndrome [Recovered/Resolved]

NARRATIVE: CASE EVENT DATE: 20241213
